FAERS Safety Report 24954236 (Version 1)
Quarter: 2025Q1

REPORT INFORMATION
  Report Type: Spontaneous
  Country: DE (occurrence: DE)
  Receive Date: 20250211
  Receipt Date: 20250211
  Transmission Date: 20250409
  Serious: Yes (Congenital Anomaly, Other)
  Sender: AUROBINDO
  Company Number: DE-EMB-M202306282-1

PATIENT
  Sex: Male
  Weight: 3.38 kg

DRUGS (4)
  1. LAMOTRIGINE [Suspect]
     Active Substance: LAMOTRIGINE
     Indication: Bipolar disorder
     Dosage: 250 MILLIGRAM, ONCE A DAY
     Route: 064
     Dates: start: 202306, end: 202312
  2. LAMOTRIGINE [Suspect]
     Active Substance: LAMOTRIGINE
     Dosage: 200 MILLIGRAM, ONCE A DAY
     Route: 064
     Dates: start: 202312, end: 202403
  3. ASPIRIN [Concomitant]
     Active Substance: ASPIRIN
     Indication: Factor V deficiency
     Dosage: 100 MILLIGRAM, ONCE A DAY
     Route: 064
     Dates: start: 202310, end: 202402
  4. HEPARIN [Concomitant]
     Active Substance: HEPARIN SODIUM
     Indication: Factor V deficiency
     Route: 064
     Dates: start: 202306, end: 202310

REACTIONS (2)
  - Hypospadias [Not Recovered/Not Resolved]
  - Foetal exposure during pregnancy [Unknown]

NARRATIVE: CASE EVENT DATE: 20240401
